FAERS Safety Report 24135625 (Version 1)
Quarter: 2024Q3

REPORT INFORMATION
  Report Type: Spontaneous
  Country: US (occurrence: US)
  Receive Date: 20240725
  Receipt Date: 20240725
  Transmission Date: 20241017
  Serious: Yes (Other)
  Sender: NOVITIUM PHARMA
  Company Number: US-NOVITIUMPHARMA-2024USNVP01340

PATIENT
  Age: 55 Year
  Sex: Male

DRUGS (2)
  1. DEXAMETHASONE [Suspect]
     Active Substance: DEXAMETHASONE
     Indication: COVID-19
  2. SARILUMAB [Concomitant]
     Active Substance: SARILUMAB
     Indication: COVID-19
     Dosage: 2 DOSES

REACTIONS (2)
  - Haemophagocytic lymphohistiocytosis [Unknown]
  - Off label use [Unknown]
